FAERS Safety Report 8596428-9 (Version None)
Quarter: 2012Q3

REPORT INFORMATION
  Report Type: 
  Country: None (occurrence: None)
  Receive Date: 20120806
  Receipt Date: 20120806
  Transmission Date: 20120928
  Serious: Yes (Disabling)
  Sender: FDA-Public Use
  Company Number: None

PATIENT
  Age: 59 Year
  Sex: Female
  Weight: 51.7101 kg

DRUGS (1)
  1. ACTONEL [Suspect]
     Indication: OSTEOPENIA
     Dosage: MONTHLY
     Dates: start: 20070101, end: 20111101

REACTIONS (3)
  - TOOTH EXTRACTION [None]
  - BONE LOSS [None]
  - DENTAL PROSTHESIS USER [None]
